FAERS Safety Report 5383566-7 (Version None)
Quarter: 2007Q3

REPORT INFORMATION
  Report Type: 
  Country: None (occurrence: None)
  Receive Date: 20070710
  Receipt Date: 20070705
  Transmission Date: 20080115
  Serious: Yes (Disabling)
  Sender: FDA-Public Use
  Company Number: JP-MERCK-0707USA01114

PATIENT
  Sex: Male

DRUGS (9)
  1. PEPCID RPD [Suspect]
     Route: 048
     Dates: start: 20070509
  2. ETODOLAC [Suspect]
     Route: 048
  3. DOGMATYL [Concomitant]
     Route: 048
  4. FLUTAMIDE [Concomitant]
     Route: 048
  5. ACTONEL [Concomitant]
     Route: 048
  6. BLOPRESS [Concomitant]
     Route: 048
  7. GASMOTIN [Concomitant]
     Route: 048
  8. NOVAMIN (PROCHLORPERAZINE MESYLATE) [Concomitant]
     Route: 048
  9. HARNAL [Concomitant]
     Route: 048

REACTIONS (1)
  - INTERSTITIAL LUNG DISEASE [None]
